FAERS Safety Report 13589277 (Version 1)
Quarter: 2017Q2

REPORT INFORMATION
  Report Type: Spontaneous
  Country: US (occurrence: US)
  Receive Date: 20170526
  Receipt Date: 20170526
  Transmission Date: 20170830
  Serious: Yes (Hospitalization)
  Sender: FDA-Public Use
  Company Number: None

PATIENT
  Age: 87 Year
  Sex: Male

DRUGS (2)
  1. SENSIPAR [Suspect]
     Active Substance: CINACALCET HYDROCHLORIDE
     Indication: END STAGE RENAL DISEASE
     Route: 048
     Dates: start: 20161031
  2. SENSIPAR [Suspect]
     Active Substance: CINACALCET HYDROCHLORIDE
     Indication: SECONDARY HYPERTHYROIDISM
     Route: 048
     Dates: start: 20161031

REACTIONS (1)
  - Fall [None]

NARRATIVE: CASE EVENT DATE: 20170525
